FAERS Safety Report 12860585 (Version 2)
Quarter: 2016Q4

REPORT INFORMATION
  Report Type: Spontaneous
  Country: US (occurrence: US)
  Receive Date: 20161019
  Receipt Date: 20161020
  Transmission Date: 20170207
  Serious: Yes (Death, Hospitalization, Other)
  Sender: FDA-Public Use
  Company Number: US-PFIZER INC-2016482685

PATIENT
  Age: 87 Year
  Sex: Female

DRUGS (4)
  1. FLUPHENAZINE [Concomitant]
     Active Substance: FLUPHENAZINE
     Indication: PSYCHOTIC BEHAVIOUR
     Dosage: 25 MG, DAILY
     Route: 048
  2. TRAZODONE [Concomitant]
     Active Substance: TRAZODONE HYDROCHLORIDE
     Indication: SLEEP DISORDER
     Dosage: 25 MG, AS NEEDED
     Route: 048
  3. ESTRING [Suspect]
     Active Substance: ESTRADIOL
     Indication: BLADDER DISORDER
     Dosage: 2 MG, EVERY 3 MONTHS
     Dates: start: 2011, end: 20160724
  4. LISINOPRIL. [Concomitant]
     Active Substance: LISINOPRIL
     Indication: HYPERTENSION
     Dosage: 40 MG, DAILY
     Route: 048

REACTIONS (12)
  - Gangrene [Unknown]
  - Eating disorder [Unknown]
  - Dysphagia [Unknown]
  - Gait disturbance [Unknown]
  - Thrombosis [Fatal]
  - Dementia [Fatal]
  - Condition aggravated [Fatal]
  - Thrombosis [Unknown]
  - Poor peripheral circulation [Unknown]
  - Cough [Unknown]
  - Product use issue [Unknown]
  - Pain [Unknown]

NARRATIVE: CASE EVENT DATE: 2012
